FAERS Safety Report 17611056 (Version 1)
Quarter: 2020Q2

REPORT INFORMATION
  Report Type: Spontaneous
  Country: US (occurrence: US)
  Receive Date: 20200401
  Receipt Date: 20200401
  Transmission Date: 20200713
  Serious: Yes (Other)
  Sender: FDA-Public Use
  Company Number: None

PATIENT
  Age: 64 Year
  Sex: Female
  Weight: 172.1 kg

DRUGS (1)
  1. RIBAVARIN [Suspect]
     Active Substance: RIBAVIRIN

REACTIONS (4)
  - Condition aggravated [None]
  - Haemoglobin decreased [None]
  - Coronavirus infection [None]
  - Acute kidney injury [None]

NARRATIVE: CASE EVENT DATE: 20200331
